FAERS Safety Report 23427883 (Version 1)
Quarter: 2024Q1

REPORT INFORMATION
  Report Type: Spontaneous
  Country: US (occurrence: None)
  Receive Date: 20240121
  Receipt Date: 20240121
  Transmission Date: 20240410
  Serious: Yes (Hospitalization, Other)
  Sender: FDA-Public Use
  Company Number: None

PATIENT
  Age: 72 Year
  Sex: Female
  Weight: 90 kg

DRUGS (11)
  1. CEFEPIME [Suspect]
     Active Substance: CEFEPIME HYDROCHLORIDE
     Indication: Pneumonia bacterial
     Dates: start: 20230823, end: 20230824
  2. GABAPENTIN [Concomitant]
     Active Substance: GABAPENTIN
  3. ZOLPIDEM [Concomitant]
     Active Substance: ZOLPIDEM TARTRATE
  4. METHOCARBAMOL [Concomitant]
     Active Substance: METHOCARBAMOL
  5. DEXTROAMPHET SACCHARAT, AMPHET ASPARTATE, DEXTROAMPHET SULFATE AND AMP [Concomitant]
     Active Substance: AMPHETAMINE ASPARTATE\AMPHETAMINE ASPARTATE MONOHYDRATE\AMPHETAMINE SULFATE\DEXTROAMPHETAMINE SACCHA
  6. MELATONIN [Concomitant]
     Active Substance: MELATONIN
  7. LIFE EXTENSION COLLAGEN POWDER [Concomitant]
  8. STEM CELL [Concomitant]
  9. DIMETHYL SULFONE [Concomitant]
     Active Substance: DIMETHYL SULFONE
  10. VIT/MINS [Concomitant]
  11. HERBAL SLEEP TEA [Concomitant]

REACTIONS (6)
  - Blood pressure increased [None]
  - Hyperhidrosis [None]
  - Cold sweat [None]
  - Nausea [None]
  - Visual impairment [None]
  - Skin texture abnormal [None]

NARRATIVE: CASE EVENT DATE: 20230823
